FAERS Safety Report 5736554-2 (Version None)
Quarter: 2008Q2

REPORT INFORMATION
  Report Type: 
  Country: None (occurrence: None)
  Receive Date: 20080508
  Receipt Date: 20080428
  Transmission Date: 20081010
  Serious: Yes (Other)
  Sender: FDA-Public Use
  Company Number: 2008010704

PATIENT
  Age: 26 Year
  Sex: Female
  Weight: 45.3597 kg

DRUGS (1)
  1. DRAMAMINE [Suspect]
     Indication: NAUSEA
     Dosage: 2 TABLETS EVERY 4-6 HOURS, ORAL
     Route: 048
     Dates: start: 20030428

REACTIONS (2)
  - DRUG DEPENDENCE [None]
  - VOMITING [None]
